FAERS Safety Report 26158717 (Version 1)
Quarter: 2025Q4

REPORT INFORMATION
  Report Type: Report from Study
  Country: BR (occurrence: BR)
  Receive Date: 20251215
  Receipt Date: 20251215
  Transmission Date: 20260118
  Serious: Yes (Death, Hospitalization, Other)
  Sender: MERCK KGAA
  Company Number: BR-Merck Healthcare KGaA-9165989

PATIENT
  Age: 46 Year
  Sex: Male

DRUGS (2)
  1. INTERFERON BETA-1A [Suspect]
     Active Substance: INTERFERON BETA-1A
     Indication: Multiple sclerosis
     Dates: start: 20191226, end: 20200506
  2. CILODOC [Concomitant]
     Indication: Product used for unknown indication
     Dosage: FREQUENCY TEXT: EARLY AND AT NIGHT

REACTIONS (8)
  - Pneumonia [Fatal]
  - Thrombosis [Fatal]
  - Anaphylactic shock [Unknown]
  - Myocardial infarction [Recovered/Resolved]
  - Urinary tract infection [Not Recovered/Not Resolved]
  - Pyrexia [Unknown]
  - Malaise [Unknown]
  - Blood cholesterol increased [Not Recovered/Not Resolved]

NARRATIVE: CASE EVENT DATE: 20200101
